FAERS Safety Report 25120474 (Version 2)
Quarter: 2025Q1

REPORT INFORMATION
  Report Type: Spontaneous
  Country: JP (occurrence: JP)
  Receive Date: 20250325
  Receipt Date: 20250327
  Transmission Date: 20250409
  Serious: Yes (Life-Threatening, Other)
  Sender: GILEAD
  Company Number: JP-GILEAD-2025-0707051

PATIENT
  Age: 8 Decade
  Sex: Female

DRUGS (1)
  1. TRODELVY [Suspect]
     Active Substance: SACITUZUMAB GOVITECAN-HZIY
     Indication: Triple negative breast cancer
     Route: 065
     Dates: start: 20250203

REACTIONS (5)
  - Neutrophil count decreased [Recovered/Resolved]
  - Metastases to liver [Unknown]
  - Herpes zoster [Recovering/Resolving]
  - Tumour marker increased [Unknown]
  - Drug ineffective [Unknown]

NARRATIVE: CASE EVENT DATE: 20250210
